FAERS Safety Report 13461272 (Version 1)
Quarter: 2017Q2

REPORT INFORMATION
  Report Type: Report from Study
  Country: CN (occurrence: CN)
  Receive Date: 20170420
  Receipt Date: 20170420
  Transmission Date: 20170830
  Serious: Yes (Hospitalization)
  Sender: FDA-Public Use
  Company Number: CN-ROCHE-1105049

PATIENT
  Age: 59 Year
  Sex: Female
  Weight: 62 kg

DRUGS (18)
  1. CARBOPLATIN. [Suspect]
     Active Substance: CARBOPLATIN
     Indication: NON-SMALL CELL LUNG CANCER
     Dosage: DOSE OF LAST CARBOPLATIN TAKEN WAS 786 MG AND DATE OF MOST RECENT DOSE OF CARBOPLATIN PRIOR TO SAE :
     Route: 042
     Dates: start: 20111125
  2. AMLODIPINE BENZENESULFONATE [Concomitant]
     Indication: HYPERTENSION
     Route: 065
     Dates: start: 2007
  3. TROPISETRON HYDROCHLORIDE [Concomitant]
     Active Substance: TROPISETRON HYDROCHLORIDE
     Route: 065
     Dates: start: 20120109, end: 20120109
  4. TROPISETRON HYDROCHLORIDE [Concomitant]
     Active Substance: TROPISETRON HYDROCHLORIDE
     Route: 065
     Dates: start: 20120213, end: 20120213
  5. THYMOPETIDUM [Concomitant]
     Route: 065
     Dates: start: 20120108, end: 20120113
  6. BEVACIZUMAB [Suspect]
     Active Substance: BEVACIZUMAB
     Indication: NON-SMALL CELL LUNG CANCER
     Dosage: DATE OF MOST RECENT DOSE OF BLINDED BEVACIZUMAB PRIOR TO AE ONSET 09/JAN/2012
     Route: 042
     Dates: start: 20111125
  7. PACLITAXEL. [Suspect]
     Active Substance: PACLITAXEL
     Indication: NON-SMALL CELL LUNG CANCER
     Dosage: DOSE OF LAST PACLITAXEL TAKEN WAS 279 MG AND DATE OF MOST RECENT DOSE OF PACLITAXEL PRIOR TO AE ONSE
     Route: 042
     Dates: start: 20111125
  8. DEXAMETHASONE SODIUM PHOSPHATE. [Concomitant]
     Active Substance: DEXAMETHASONE SODIUM PHOSPHATE
     Route: 065
     Dates: start: 20120213, end: 20120213
  9. RANITIDINE. [Concomitant]
     Active Substance: RANITIDINE
     Route: 065
     Dates: start: 20120109, end: 20120109
  10. VITAMIN E [Concomitant]
     Active Substance: .ALPHA.-TOCOPHEROL
     Route: 065
     Dates: start: 20120109, end: 20120123
  11. THYMOPETIDUM [Concomitant]
     Route: 065
     Dates: start: 20120131, end: 20120214
  12. RANITIDINE. [Concomitant]
     Active Substance: RANITIDINE
     Route: 065
     Dates: start: 20120213, end: 20120213
  13. VITAMIN C [Concomitant]
     Active Substance: ASCORBIC ACID
     Route: 065
     Dates: start: 20120213, end: 20120227
  14. VITAMIN C [Concomitant]
     Active Substance: ASCORBIC ACID
     Route: 065
     Dates: start: 20120109, end: 20120123
  15. METOPROLOL. [Concomitant]
     Active Substance: METOPROLOL
     Indication: HYPERTENSION
     Route: 065
     Dates: start: 20120110, end: 20120124
  16. DEXAMETHASONE SODIUM PHOSPHATE. [Concomitant]
     Active Substance: DEXAMETHASONE SODIUM PHOSPHATE
     Route: 065
     Dates: start: 20120109, end: 20120109
  17. NIFEDIPINE. [Concomitant]
     Active Substance: NIFEDIPINE
     Indication: HYPERTENSION
     Route: 065
     Dates: start: 20120107, end: 20120124
  18. FILGRASTIM [Concomitant]
     Active Substance: FILGRASTIM
     Indication: BONE MARROW FAILURE
     Route: 065
     Dates: start: 20120202, end: 20120202

REACTIONS (1)
  - Bone marrow failure [Recovered/Resolved]

NARRATIVE: CASE EVENT DATE: 20120131
